FAERS Safety Report 21297008 (Version 1)
Quarter: 2022Q3

REPORT INFORMATION
  Report Type: Spontaneous
  Country: CA (occurrence: CA)
  Receive Date: 20220906
  Receipt Date: 20220906
  Transmission Date: 20221026
  Serious: Yes (Hospitalization, Other)
  Sender: FDA-Public Use
  Company Number: CA-SANOFI-01260695

PATIENT
  Age: 39 Year
  Sex: Female

DRUGS (1)
  1. DUPIXENT [Suspect]
     Active Substance: DUPILUMAB
     Indication: Nasal polyps
     Dosage: 300 MG QOW

REACTIONS (6)
  - Breast cellulitis [Unknown]
  - Cellulitis [Unknown]
  - Folliculitis [Unknown]
  - Pruritus [Unknown]
  - Swelling face [Unknown]
  - Product use in unapproved indication [Unknown]
